FAERS Safety Report 8113509-4 (Version None)
Quarter: 2012Q1

REPORT INFORMATION
  Report Type: 
  Country: None (occurrence: None)
  Receive Date: 20120203
  Receipt Date: 20120201
  Transmission Date: 20120608
  Serious: Yes (Other)
  Sender: FDA-Public Use
  Company Number: CO-PFIZER INC-2010065665

PATIENT
  Age: 68 Year
  Sex: Female

DRUGS (12)
  1. WARFARIN [Concomitant]
     Indication: ANTICOAGULANT THERAPY
     Dosage: 5 MG, 1X/DAY
  2. VITAMIN D [Concomitant]
     Indication: NEURALGIA
  3. LIPITOR [Suspect]
     Indication: BLOOD CHOLESTEROL INCREASED
     Dosage: 20 MG, DAILY
     Route: 048
     Dates: start: 19980101
  4. LYRICA [Suspect]
     Indication: NEURALGIA
     Dosage: UNK, 1X/DAY
     Route: 048
     Dates: start: 20100301, end: 20100101
  5. VITAMIN D [Concomitant]
     Indication: PAIN
     Dosage: UNK
  6. LYRICA [Suspect]
     Indication: SCIATIC NERVE NEUROPATHY
  7. OLMESARTAN MEDOXOMIL [Suspect]
     Indication: HYPERTENSION
     Dosage: 10 MG, 1X/DAY
     Route: 048
     Dates: start: 20080101
  8. OLMESARTAN MEDOXOMIL [Suspect]
  9. NEURONTIN [Suspect]
     Indication: NEUROPATHY PERIPHERAL
     Dosage: 400 MG, DAILY
     Route: 048
     Dates: start: 20100518
  10. METOPROLOL SUCCINATE [Concomitant]
     Indication: HYPERTENSION
     Dosage: 100 MG, 1X/DAY
  11. LIPITOR [Suspect]
     Indication: HYPERCHOLESTEROLAEMIA
  12. CALCIUM [Concomitant]
     Indication: OSTEOPOROSIS PROPHYLAXIS
     Dosage: 2 DF, DAILY
     Route: 048

REACTIONS (9)
  - COAGULATION TIME PROLONGED [None]
  - NEUROPATHY PERIPHERAL [None]
  - SPINAL DISORDER [None]
  - SPINAL COLUMN STENOSIS [None]
  - HYPOTENSION [None]
  - CARDIAC ABLATION [None]
  - ATRIAL FIBRILLATION [None]
  - PALPITATIONS [None]
  - CHEST PAIN [None]
